FAERS Safety Report 18133144 (Version 2)
Quarter: 2020Q3

REPORT INFORMATION
  Report Type: Spontaneous
  Country: NO (occurrence: NO)
  Receive Date: 20200811
  Receipt Date: 20200814
  Transmission Date: 20201103
  Serious: Yes (Other)
  Sender: FDA-Public Use
  Company Number: NO-JNJFOC-20200803698

PATIENT
  Age: 54 Year
  Sex: Female

DRUGS (1)
  1. SIMPONI [Suspect]
     Active Substance: GOLIMUMAB
     Indication: ANKYLOSING SPONDYLITIS
     Dosage: ADDITIONAL INFO: L04AB06 ? GOLIMUMAB, GOLIMUMAB: 50MG;
     Route: 058
     Dates: start: 20140101, end: 20200701

REACTIONS (3)
  - Renal cancer metastatic [Not Recovered/Not Resolved]
  - Pyelonephritis acute [Not Recovered/Not Resolved]
  - Sepsis [Not Recovered/Not Resolved]
